FAERS Safety Report 18541724 (Version 1)
Quarter: 2020Q4

REPORT INFORMATION
  Report Type: Spontaneous
  Country: US (occurrence: US)
  Receive Date: 20201124
  Receipt Date: 20201124
  Transmission Date: 20210114
  Serious: No
  Sender: FDA-Public Use
  Company Number: US-BAUSCH-BL-2020-031774

PATIENT
  Age: 73 Year
  Sex: Female

DRUGS (2)
  1. ALAWAY [Suspect]
     Active Substance: KETOTIFEN FUMARATE
     Indication: EYE PRURITUS
     Dosage: 1 DROP IN EACH EYE TWICE A DAY
     Route: 047
  2. ADVANCED EYE RELIEF DRY EYE REJUVENATION [Suspect]
     Active Substance: GLYCERIN\PROPYLENE GLYCOL
     Indication: DRY EYE
     Dosage: AS NEEDED
     Route: 047

REACTIONS (5)
  - Eye irritation [Not Recovered/Not Resolved]
  - Ocular hyperaemia [Recovered/Resolved]
  - Conjunctivitis [Unknown]
  - Sinusitis [Unknown]
  - Periorbital swelling [Recovered/Resolved]

NARRATIVE: CASE EVENT DATE: 2020
